FAERS Safety Report 18912567 (Version 1)
Quarter: 2021Q1

REPORT INFORMATION
  Report Type: Spontaneous
  Country: IN (occurrence: IN)
  Receive Date: 20210218
  Receipt Date: 20210218
  Transmission Date: 20210420
  Serious: Yes (Other)
  Sender: FDA-Public Use
  Company Number: IN-PFIZER INC-2021122707

PATIENT
  Age: 62 Year
  Sex: Female

DRUGS (3)
  1. ZA [Concomitant]
     Dosage: UNK
  2. FEMARA [Concomitant]
     Active Substance: LETROZOLE
     Dosage: UNK
  3. PALBACE [Suspect]
     Active Substance: PALBOCICLIB
     Indication: BREAST CANCER METASTATIC
     Dosage: 125 MG, 1X/DAY
     Route: 048
     Dates: start: 20201130

REACTIONS (4)
  - Arthralgia [Unknown]
  - Upper limb fracture [Unknown]
  - Lower limb fracture [Unknown]
  - Neoplasm progression [Unknown]
